FAERS Safety Report 17462611 (Version 1)
Quarter: 2020Q1

REPORT INFORMATION
  Report Type: Spontaneous
  Country: US (occurrence: US)
  Receive Date: 20200226
  Receipt Date: 20200226
  Transmission Date: 20200409
  Serious: Yes (Other)
  Sender: FDA-Public Use
  Company Number: US-ASTRAZENECA-2020SE26962

PATIENT
  Sex: Female
  Weight: 52.2 kg

DRUGS (1)
  1. FASENRA [Suspect]
     Active Substance: BENRALIZUMAB
     Indication: ASTHMA
     Dosage: 3 OR 4 DOSES UNKNOWN
     Route: 058
     Dates: start: 201811

REACTIONS (2)
  - Pulmonary cavitation [Unknown]
  - Drug ineffective [Unknown]
